FAERS Safety Report 5696365-3 (Version None)
Quarter: 2008Q2

REPORT INFORMATION
  Report Type: 
  Country: None (occurrence: None)
  Receive Date: 20080408
  Receipt Date: 20080326
  Transmission Date: 20081010
  Serious: Yes (Other)
  Sender: FDA-Public Use
  Company Number: US-PFIZER INC-2008027472

PATIENT
  Sex: Female
  Weight: 117.9 kg

DRUGS (11)
  1. NEURONTIN [Suspect]
     Indication: PAIN MANAGEMENT
     Dates: start: 20030101, end: 20030101
  2. LYRICA [Interacting]
     Indication: FIBROMYALGIA
  3. OXYCODONE HCL [Interacting]
  4. BACLOFEN [Concomitant]
  5. VYTORIN [Concomitant]
  6. BUPROPION HCL [Concomitant]
  7. METFORMIN HCL [Concomitant]
  8. LISINOPRIL [Concomitant]
  9. VITAMIN D [Concomitant]
  10. CYMBALTA [Concomitant]
  11. STOOL SOFTENER [Concomitant]
     Indication: CONSTIPATION

REACTIONS (7)
  - ACTIVITIES OF DAILY LIVING IMPAIRED [None]
  - CONFUSIONAL STATE [None]
  - DIZZINESS [None]
  - DRUG INTERACTION [None]
  - EUPHORIC MOOD [None]
  - INCORRECT DOSE ADMINISTERED [None]
  - SOMNOLENCE [None]
